FAERS Safety Report 9522459 (Version 1)
Quarter: 2013Q3

REPORT INFORMATION
  Report Type: Spontaneous
  Country: FR (occurrence: FR)
  Receive Date: 20130913
  Receipt Date: 20130913
  Transmission Date: 20140515
  Serious: Yes (Other)
  Sender: FDA-Public Use
  Company Number: FR-NOVOPROD-387128

PATIENT
  Age: 59 Year
  Sex: Female

DRUGS (5)
  1. VICTOZA [Suspect]
     Indication: TYPE 2 DIABETES MELLITUS
     Route: 058
     Dates: end: 20130311
  2. DIAMICRON [Concomitant]
     Indication: TYPE 2 DIABETES MELLITUS
     Route: 048
  3. GLUCOPHAGE [Concomitant]
     Indication: TYPE 2 DIABETES MELLITUS
     Route: 048
  4. TAHOR [Concomitant]
     Route: 048
  5. COTAREG [Concomitant]
     Indication: HYPERTENSION
     Route: 048

REACTIONS (4)
  - Hepatitis [Recovered/Resolved]
  - Clear cell renal cell carcinoma [Unknown]
  - Nausea [Recovered/Resolved]
  - Diabetes mellitus inadequate control [Unknown]
